FAERS Safety Report 6435856-4 (Version None)
Quarter: 2009Q4

REPORT INFORMATION
  Report Type: 
  Country: None (occurrence: None)
  Receive Date: 20091111
  Receipt Date: 20091029
  Transmission Date: 20100525
  Serious: Yes (Disabling, Other)
  Sender: FDA-Public Use
  Company Number: US-ELI_LILLY_AND_COMPANY-US200910007988

PATIENT
  Age: 54 Year
  Sex: Female

DRUGS (9)
  1. CYMBALTA [Suspect]
     Indication: PAIN
     Dosage: 20 MG, DAILY (1/D)
     Dates: start: 20070401
  2. CYMBALTA [Suspect]
     Dosage: 30 MG, DAILY (1/D)
     Dates: start: 20080101
  3. CYMBALTA [Suspect]
     Dosage: 60 MG, DAILY (1/D)
     Dates: start: 20091001
  4. CYMBALTA [Suspect]
  5. CYMBALTA [Suspect]
  6. CYMBALTA [Suspect]
  7. LISINOPRIL [Concomitant]
  8. DOXAZOSIN MESYLATE [Concomitant]
  9. ASPIRIN [Concomitant]

REACTIONS (7)
  - ARTHRITIS [None]
  - DEPRESSION [None]
  - DRUG EFFECT DECREASED [None]
  - INTERVERTEBRAL DISC PROTRUSION [None]
  - NAUSEA [None]
  - OEDEMA PERIPHERAL [None]
  - ROAD TRAFFIC ACCIDENT [None]
